FAERS Safety Report 8174274-8 (Version None)
Quarter: 2012Q1

REPORT INFORMATION
  Report Type: 
  Country: None (occurrence: None)
  Receive Date: 20120227
  Receipt Date: 20120213
  Transmission Date: 20120608
  Serious: Yes (Hospitalization)
  Sender: FDA-Public Use
  Company Number: UTC-015547

PATIENT
  Age: 64 Year
  Sex: Female
  Weight: 61.4 kg

DRUGS (1)
  1. TYVASO [Suspect]
     Indication: PULMONARY HYPERTENSION
     Dosage: 18-54 MICROGRAMS (4 IN 1 D),INHALATION
     Route: 055
     Dates: start: 20120119

REACTIONS (2)
  - RECTAL HAEMORRHAGE [None]
  - ANAEMIA [None]
